FAERS Safety Report 4654428-5 (Version None)
Quarter: 2005Q2

REPORT INFORMATION
  Report Type: 
  Country: None (occurrence: None)
  Receive Date: 20050504
  Receipt Date: 20050422
  Transmission Date: 20051028
  Serious: Yes (Life-Threatening, Hospitalization)
  Sender: FDA-Public Use
  Company Number: 2005061741

PATIENT
  Age: 8 Year
  Sex: Female
  Weight: 21 kg

DRUGS (16)
  1. SOLU-MEDROL [Suspect]
     Indication: ILL-DEFINED DISORDER
     Dosage: 60 MG (3 IN 1 D), INTRAVENOUS
     Route: 042
     Dates: start: 20050205
  2. AMPHOTERICIN B [Suspect]
     Indication: PROPHYLAXIS
     Dosage: 60 MG (1 IN 1 D), INTRAVENOUS
     Route: 042
     Dates: start: 20050220
  3. GANCICLOVIR SODIUM [Suspect]
     Indication: PROPHYLAXIS
     Dosage: 200 MG (500 MG, 1 IN 1D, INTRAVENOUS)
     Route: 042
     Dates: start: 20050220
  4. FUROSEMIDE [Suspect]
     Indication: ILL-DEFINED DISORDER
     Dosage: 15 MG (3 IN 1 D), INTRAVENOUS
     Route: 042
     Dates: start: 20050209
  5. HEPARIN SODIUM [Concomitant]
  6. CYCLOSPORINE [Concomitant]
  7. DEXCHLORPHENIRAMINE MALEATE [Concomitant]
  8. ACYCLOVIR [Concomitant]
  9. AMIKACIN [Concomitant]
  10. CEFTAZIDIME PENTAHYDRAT (CEFTAZIDIMEPENTAHYDRATE) [Concomitant]
  11. VANCOMYCIN HYDROCHLORIDE [Concomitant]
  12. ACETAMINOPHEN [Concomitant]
  13. OMEPRAZOLE [Concomitant]
  14. SPASFON (PHLOROGLUCINOL, TRIMETHYLPHLOROGLUCINOL) [Concomitant]
  15. IMMUNE GLOBULIN INTRAVENOUS (HUMAN) [Concomitant]
  16. MORPHINE SULFATE [Concomitant]

REACTIONS (3)
  - BRADYCARDIA [None]
  - DRUG INTERACTION [None]
  - HYPOKALAEMIA [None]
